FAERS Safety Report 13815849 (Version 3)
Quarter: 2017Q3

REPORT INFORMATION
  Report Type: Spontaneous
  Country: IT (occurrence: IT)
  Receive Date: 20170731
  Receipt Date: 20170907
  Transmission Date: 20171127
  Serious: Yes (Life-Threatening)
  Sender: FDA-Public Use
  Company Number: IT-SA-2017SA136645

PATIENT
  Age: 70 Year
  Sex: Male

DRUGS (6)
  1. 5-FU [Concomitant]
     Active Substance: FLUOROURACIL
     Route: 041
  2. LEVOFOLINIC ACID [Concomitant]
     Active Substance: LEVOLEUCOVORIN
     Route: 042
  3. AVASTIN [Concomitant]
     Active Substance: BEVACIZUMAB
     Route: 065
  4. 5-FU [Concomitant]
     Active Substance: FLUOROURACIL
     Route: 041
  5. OXALIPLATIN. [Suspect]
     Active Substance: OXALIPLATIN
     Indication: ADENOCARCINOMA OF COLON
     Route: 041
     Dates: start: 20170419, end: 20170419
  6. OXALIPLATIN. [Suspect]
     Active Substance: OXALIPLATIN
     Indication: ADENOCARCINOMA OF COLON
     Route: 041
     Dates: start: 20170704, end: 20170704

REACTIONS (5)
  - Bronchospasm [Recovered/Resolved]
  - Cyanosis [Recovered/Resolved]
  - Infusion related reaction [Recovered/Resolved]
  - Hypertension [Recovered/Resolved]
  - Pruritus [Recovered/Resolved]

NARRATIVE: CASE EVENT DATE: 20170704
